FAERS Safety Report 8365809-0 (Version None)
Quarter: 2012Q2

REPORT INFORMATION
  Report Type: 
  Country: None (occurrence: None)
  Receive Date: 20120517
  Receipt Date: 20120511
  Transmission Date: 20120825
  Serious: Yes (Other)
  Sender: FDA-Public Use
  Company Number: US-AMGEN-USASP2012029880

PATIENT
  Age: 58 Year
  Sex: Male

DRUGS (4)
  1. SULFASALAZINE [Concomitant]
     Dosage: UNK
  2. ENBREL [Suspect]
     Indication: RHEUMATOID ARTHRITIS
     Dosage: 50 MG, QWK
     Dates: start: 20070101
  3. HUMIRA [Concomitant]
     Dosage: 40 MG, 2 TIMES/WK
     Dates: start: 20120403
  4. LEFLUNOMIDE [Concomitant]
     Dosage: UNK

REACTIONS (8)
  - POLYP [None]
  - JOINT EFFUSION [None]
  - FATIGUE [None]
  - DYSPHONIA [None]
  - DRUG INEFFECTIVE [None]
  - CARPAL TUNNEL SYNDROME [None]
  - NEURALGIA [None]
  - COLONIC POLYP [None]
